FAERS Safety Report 7656605-8 (Version None)
Quarter: 2011Q3

REPORT INFORMATION
  Report Type: 
  Country: None (occurrence: None)
  Receive Date: 20110804
  Receipt Date: 20110801
  Transmission Date: 20111222
  Serious: Yes (Hospitalization, Other)
  Sender: FDA-Public Use
  Company Number: US-ABBOTT-11P-163-0843021-00

PATIENT
  Sex: Female
  Weight: 61.29 kg

DRUGS (7)
  1. VITAMIN B-12 [Concomitant]
     Indication: VITAMIN SUPPLEMENTATION
     Route: 030
  2. METHOTREXATE [Concomitant]
     Indication: RHEUMATOID ARTHRITIS
  3. HUMIRA [Suspect]
     Indication: RHEUMATOID ARTHRITIS
     Route: 058
     Dates: start: 20110401, end: 20110601
  4. FOLIC ACID [Concomitant]
     Indication: RHEUMATOID ARTHRITIS
  5. HUMIRA [Suspect]
     Route: 058
     Dates: start: 20110802
  6. SULFAZINE [Concomitant]
     Indication: RHEUMATOID ARTHRITIS
  7. AVAPRO [Concomitant]
     Indication: HYPERTENSION

REACTIONS (7)
  - PNEUMONIA [None]
  - OXYGEN SATURATION DECREASED [None]
  - COUGH [None]
  - WHEEZING [None]
  - ASTHENIA [None]
  - DECREASED APPETITE [None]
  - ABASIA [None]
